FAERS Safety Report 19232636 (Version 1)
Quarter: 2021Q2

REPORT INFORMATION
  Report Type: Spontaneous
  Country: KR (occurrence: KR)
  Receive Date: 20210507
  Receipt Date: 20210507
  Transmission Date: 20210717
  Serious: Yes (Life-Threatening, Other)
  Sender: FDA-Public Use
  Company Number: KR-ACCORD-223036

PATIENT
  Age: 51 Year
  Sex: Female

DRUGS (2)
  1. DOCETAXEL. [Suspect]
     Active Substance: DOCETAXEL
     Indication: HORMONE RECEPTOR POSITIVE BREAST CANCER
     Dates: start: 20190625
  2. DOXORUBICIN [Suspect]
     Active Substance: DOXORUBICIN
     Indication: HORMONE RECEPTOR POSITIVE BREAST CANCER
     Dates: start: 20190625

REACTIONS (2)
  - Treatment failure [Unknown]
  - Neutropenia [Unknown]

NARRATIVE: CASE EVENT DATE: 201906
